FAERS Safety Report 10881879 (Version 1)
Quarter: 2015Q1

REPORT INFORMATION
  Report Type: Spontaneous
  Country: US (occurrence: None)
  Receive Date: 20150227
  Receipt Date: 20150227
  Transmission Date: 20150721
  Serious: Yes (Death)
  Sender: FDA-Public Use
  Company Number: None

PATIENT
  Age: 91 Year
  Sex: Female

DRUGS (2)
  1. AFINITOR [Suspect]
     Active Substance: EVEROLIMUS
     Indication: BRONCHIAL CARCINOMA
     Route: 048
     Dates: start: 20150129, end: 20150220
  2. AFINITOR [Suspect]
     Active Substance: EVEROLIMUS
     Indication: LUNG NEOPLASM MALIGNANT
     Route: 048
     Dates: start: 20150129, end: 20150220

REACTIONS (1)
  - Renal failure [None]

NARRATIVE: CASE EVENT DATE: 20150217
